FAERS Safety Report 14354189 (Version 1)
Quarter: 2018Q1

REPORT INFORMATION
  Report Type: Spontaneous
  Country: CN (occurrence: CN)
  Receive Date: 20180105
  Receipt Date: 20180105
  Transmission Date: 20180509
  Serious: Yes (Hospitalization, Other)
  Sender: FDA-Public Use
  Company Number: CN-ABBVIE-18P-035-2210506-00

PATIENT
  Age: 73 Year
  Sex: Male

DRUGS (2)
  1. DEPAKINE [Suspect]
     Active Substance: VALPROATE SODIUM
     Indication: EPILEPSY
     Route: 050
  2. DEPAKINE CHRONO [Suspect]
     Active Substance: VALPROATE SODIUM
     Indication: EPILEPSY
     Route: 048
     Dates: start: 201605

REACTIONS (14)
  - Muscle rigidity [Not Recovered/Not Resolved]
  - Eye movement disorder [Unknown]
  - Urinary incontinence [Unknown]
  - Encephalitis autoimmune [Unknown]
  - Parkinson^s disease [Not Recovered/Not Resolved]
  - Decreased activity [Not Recovered/Not Resolved]
  - Seizure [Unknown]
  - Eye disorder [Unknown]
  - Loss of consciousness [Unknown]
  - Epilepsy [Recovered/Resolved]
  - Pneumonia [Recovered/Resolved]
  - Wrong technique in product usage process [Unknown]
  - Epilepsy [Recovered/Resolved]
  - Nasopharyngitis [Recovered/Resolved]

NARRATIVE: CASE EVENT DATE: 201608
